FAERS Safety Report 13993430 (Version 1)
Quarter: 2017Q3

REPORT INFORMATION
  Report Type: Report from Study
  Country: US (occurrence: US)
  Receive Date: 20170920
  Receipt Date: 20170920
  Transmission Date: 20171128
  Serious: Yes (Death)
  Sender: FDA-Public Use
  Company Number: US-ACTELION-A-US2016-144735

PATIENT
  Age: 58 Year
  Sex: Female
  Weight: 104.31 kg

DRUGS (1)
  1. UPTRAVI [Suspect]
     Active Substance: SELEXIPAG
     Indication: PULMONARY ARTERIAL HYPERTENSION
     Dosage: 1600 MCG, BID
     Route: 048
     Dates: start: 20160912

REACTIONS (3)
  - Pain in extremity [Unknown]
  - Platelet count decreased [Unknown]
  - Lung neoplasm malignant [Fatal]
